FAERS Safety Report 25911992 (Version 2)
Quarter: 2025Q4

REPORT INFORMATION
  Report Type: Spontaneous
  Country: EU (occurrence: EU)
  Receive Date: 20251013
  Receipt Date: 20251105
  Transmission Date: 20260117
  Serious: Yes (Hospitalization, Other)
  Sender: PIRAMAL
  Company Number: EU-PIRAMAL PHARMA LIMITED-2025-PPL-000573

PATIENT

DRUGS (1)
  1. SEVOFLURANE [Suspect]
     Active Substance: SEVOFLURANE
     Indication: Sedation
     Dosage: 0.49 VOL PERCENT

REACTIONS (5)
  - Hypernatraemia [Recovered/Resolved]
  - Hyperosmolar state [Recovered/Resolved]
  - Disease progression [Recovered/Resolved]
  - Renal impairment [Recovered/Resolved]
  - Product use in unapproved indication [Unknown]
